FAERS Safety Report 4693321-9 (Version None)
Quarter: 2005Q2

REPORT INFORMATION
  Report Type: 
  Country: None (occurrence: None)
  Receive Date: 20050617
  Receipt Date: 20050609
  Transmission Date: 20051028
  Serious: Yes (Hospitalization)
  Sender: FDA-Public Use
  Company Number: JP-MERCK-0506USA01502

PATIENT
  Age: 84 Year
  Sex: Female

DRUGS (5)
  1. COZAAR [Suspect]
     Route: 048
     Dates: end: 20050513
  2. PONTAL [Suspect]
     Route: 065
     Dates: start: 20050512, end: 20050513
  3. NORFLOXACIN [Suspect]
     Route: 048
     Dates: start: 20050512, end: 20050513
  4. [THERAPY UNSPECIFIED] [Suspect]
     Route: 065
     Dates: start: 20050512, end: 20050513
  5. SULFADIMETHOXINE [Suspect]
     Route: 051
     Dates: start: 20050512, end: 20050513

REACTIONS (2)
  - COUGH [None]
  - TOXIC EPIDERMAL NECROLYSIS [None]
